FAERS Safety Report 7114255-6 (Version None)
Quarter: 2010Q4

REPORT INFORMATION
  Report Type: 
  Country: None (occurrence: None)
  Receive Date: 20101119
  Receipt Date: 20101109
  Transmission Date: 20110411
  Serious: Yes (Hospitalization)
  Sender: FDA-Public Use
  Company Number: US-ASTRAZENECA-2010SE54567

PATIENT
  Age: 54 Year
  Sex: Female
  Weight: 45.4 kg

DRUGS (1)
  1. NEXIUM [Suspect]
     Indication: GASTROOESOPHAGEAL REFLUX DISEASE
     Route: 048
     Dates: start: 20010101

REACTIONS (5)
  - ALOPECIA [None]
  - BURN OESOPHAGEAL [None]
  - DRUG DEPENDENCE [None]
  - DRUG INEFFECTIVE [None]
  - OSTEOPOROSIS [None]
